FAERS Safety Report 7505663-X (Version None)
Quarter: 2011Q2

REPORT INFORMATION
  Report Type: 
  Country: None (occurrence: None)
  Receive Date: 20110404
  Receipt Date: 20100430
  Transmission Date: 20111010
  Serious: Yes (Other)
  Sender: FDA-Public Use
  Company Number: 009666

PATIENT
  Age: 28 Year
  Sex: Male

DRUGS (4)
  1. LINEZOLID [Concomitant]
  2. BUSULFEX [Suspect]
     Dosage: 5 MG/KG, INTRAVENOUS
     Route: 042
  3. VANCOMYCIN [Concomitant]
  4. MEROPENEM [Concomitant]

REACTIONS (4)
  - DEVICE RELATED INFECTION [None]
  - THROMBOCYTOPENIA [None]
  - MUCOSAL INFLAMMATION [None]
  - NEUTROPENIA [None]
